FAERS Safety Report 17098246 (Version 1)
Quarter: 2019Q4

REPORT INFORMATION
  Report Type: Spontaneous
  Country: US (occurrence: US)
  Receive Date: 20191202
  Receipt Date: 20191202
  Transmission Date: 20200122
  Serious: No
  Sender: FDA-Public Use
  Company Number: US-PFIZER INC-2019520826

PATIENT
  Age: 59 Year
  Sex: Female
  Weight: 112.9 kg

DRUGS (4)
  1. GABAPENTIN. [Suspect]
     Active Substance: GABAPENTIN
     Indication: HERPES ZOSTER
     Dosage: 1800 MG, 3X/DAY (3 - 600 MG CAPSULES AT A TIME, THREE TIMES A DAY)
  2. GABAPENTIN. [Suspect]
     Active Substance: GABAPENTIN
     Indication: SCIATICA
  3. GABAPENTIN. [Suspect]
     Active Substance: GABAPENTIN
     Indication: DIABETIC NEUROPATHY
  4. GABAPENTIN. [Suspect]
     Active Substance: GABAPENTIN
     Indication: PAIN
     Dosage: 300 MG, 2X/DAY
     Dates: start: 2011

REACTIONS (4)
  - Therapeutic product effect incomplete [Unknown]
  - Overdose [Unknown]
  - Intentional product use issue [Unknown]
  - Pruritus [Unknown]
